FAERS Safety Report 8494440-1 (Version None)
Quarter: 2012Q3

REPORT INFORMATION
  Report Type: 
  Country: None (occurrence: None)
  Receive Date: 20120709
  Receipt Date: 20120629
  Transmission Date: 20120928
  Serious: Yes (Hospitalization)
  Sender: FDA-Public Use
  Company Number: US-US-EMD SERONO, INC.-7138033

PATIENT
  Sex: Female

DRUGS (3)
  1. REBIF [Suspect]
     Indication: MULTIPLE SCLEROSIS
     Route: 058
     Dates: start: 20120426
  2. REBIF [Suspect]
     Route: 058
  3. PAIN MEDICATION [Concomitant]
     Indication: ARTHRITIS

REACTIONS (9)
  - CHEST DISCOMFORT [None]
  - INJECTION SITE PAIN [None]
  - CHILLS [None]
  - APHASIA [None]
  - ABASIA [None]
  - ABDOMINAL DISCOMFORT [None]
  - ARTHRITIS [None]
  - ARTHRALGIA [None]
  - MYALGIA [None]
